FAERS Safety Report 21012417 (Version 1)
Quarter: 2022Q2

REPORT INFORMATION
  Report Type: Spontaneous
  Country: US (occurrence: US)
  Receive Date: 20220627
  Receipt Date: 20220627
  Transmission Date: 20220721
  Serious: No
  Sender: FDA-Public Use
  Company Number: US-BRISTOL-MYERS SQUIBB COMPANY-2022-058729

PATIENT
  Age: 72 Year
  Sex: Male
  Weight: 149.68 kg

DRUGS (1)
  1. REVLIMID [Suspect]
     Active Substance: LENALIDOMIDE
     Indication: Plasma cell myeloma
     Dosage: 10 MILLIGRAM, 21 DAYS ON 7 DAYS OFF
     Route: 048
     Dates: start: 20200903

REACTIONS (1)
  - Nasopharyngitis [Recovered/Resolved]
